FAERS Safety Report 4954051-9 (Version None)
Quarter: 2006Q1

REPORT INFORMATION
  Report Type: 
  Country: None (occurrence: None)
  Receive Date: 20060327
  Receipt Date: 20060315
  Transmission Date: 20060701
  Serious: Yes (Other)
  Sender: FDA-Public Use
  Company Number: PHBS2006SE04125

PATIENT
  Sex: Female

DRUGS (1)
  1. ESTRADOT [Suspect]
     Dosage: 37.5 UG/24H

REACTIONS (1)
  - HIP ARTHROPLASTY [None]
